FAERS Safety Report 15201993 (Version 1)
Quarter: 2018Q3

REPORT INFORMATION
  Report Type: Report from Study
  Country: FR (occurrence: FR)
  Receive Date: 20180726
  Receipt Date: 20180726
  Transmission Date: 20181010
  Serious: Yes (Other)
  Sender: FDA-Public Use
  Company Number: FR-JNJFOC-20180723339

PATIENT
  Age: 66 Year
  Sex: Female
  Weight: 70 kg

DRUGS (19)
  1. SPIRAMYCIN [Concomitant]
     Active Substance: SPIRAMYCIN
     Route: 065
     Dates: start: 20161120, end: 20161123
  2. SEBIPROX [Concomitant]
     Route: 065
     Dates: start: 2016
  3. STELARA [Suspect]
     Active Substance: USTEKINUMAB
     Indication: PSORIASIS
     Route: 058
     Dates: start: 20160110, end: 20160210
  4. NOOTROPYL [Concomitant]
     Active Substance: PIRACETAM
     Route: 065
  5. METHOTREXATE. [Concomitant]
     Active Substance: METHOTREXATE
     Route: 048
     Dates: start: 201111, end: 201502
  6. ESOMEPRAZOLE [Concomitant]
     Active Substance: ESOMEPRAZOLE
     Route: 065
  7. BETASERC [Concomitant]
     Active Substance: BETAHISTINE
     Route: 065
  8. ACITRETIN. [Concomitant]
     Active Substance: ACITRETIN
     Route: 048
     Dates: start: 200603, end: 200610
  9. METHOTREXATE. [Concomitant]
     Active Substance: METHOTREXATE
     Route: 048
     Dates: start: 200701, end: 201111
  10. KARDEGIC [Concomitant]
     Active Substance: ASPIRIN DL-LYSINE
     Route: 065
     Dates: start: 2006
  11. AUGMENTIN [Concomitant]
     Active Substance: AMOXICILLIN\CLAVULANATE POTASSIUM
     Route: 065
     Dates: start: 20161124, end: 20161124
  12. ACITRETIN. [Concomitant]
     Active Substance: ACITRETIN
     Route: 048
     Dates: start: 2000, end: 2004
  13. METHOTREXATE. [Concomitant]
     Active Substance: METHOTREXATE
     Route: 048
     Dates: start: 201506, end: 20151027
  14. SECUKINUMAB. [Concomitant]
     Active Substance: SECUKINUMAB
     Route: 058
     Dates: start: 20170222
  15. METHOTREXATE. [Concomitant]
     Active Substance: METHOTREXATE
     Route: 048
     Dates: start: 200603, end: 200610
  16. STELARA [Suspect]
     Active Substance: USTEKINUMAB
     Indication: PSORIASIS
     Route: 058
     Dates: start: 20160210, end: 20160510
  17. AMBROXOL [Concomitant]
     Active Substance: AMBROXOL
     Route: 065
     Dates: start: 20161117, end: 20161120
  18. SECUKINUMAB. [Concomitant]
     Active Substance: SECUKINUMAB
     Route: 058
     Dates: start: 20161114, end: 20161126
  19. COAPROVEL [Concomitant]
     Active Substance: HYDROCHLOROTHIAZIDE\IRBESARTAN
     Route: 065
     Dates: start: 2004, end: 20161124

REACTIONS (1)
  - Squamous cell carcinoma [Recovered/Resolved]

NARRATIVE: CASE EVENT DATE: 201604
